FAERS Safety Report 4438210-X (Version None)
Quarter: 2004Q3

REPORT INFORMATION
  Report Type: 
  Country: None (occurrence: None)
  Receive Date: 20040831
  Receipt Date: 20040616
  Transmission Date: 20050211
  Serious: No
  Sender: FDA-Public Use
  Company Number: US-GLAXOSMITHKLINE-A0514895A

PATIENT
  Sex: Female

DRUGS (23)
  1. WELLBUTRIN XL [Suspect]
     Indication: DEPRESSION
     Dosage: 150MG PER DAY
     Route: 048
     Dates: start: 20040616
  2. IBUPROFEN [Concomitant]
  3. ACTOS [Concomitant]
  4. ZAROXOLYN [Concomitant]
  5. ALDACTONE [Concomitant]
  6. BUTALBITAL/APAP/CAFFEINE [Concomitant]
  7. COUMADIN [Concomitant]
  8. HYDROCODONE [Concomitant]
  9. DOCUSATE [Concomitant]
  10. GLUCOPHAGE [Concomitant]
  11. PREVACID [Concomitant]
  12. DIOVAN [Concomitant]
  13. LANOXIN [Concomitant]
  14. BETAPACE [Concomitant]
  15. ALPRAZOLAM [Concomitant]
  16. ALBUTEROL [Concomitant]
  17. ADVAIR DISKUS 100/50 [Concomitant]
  18. PHAZYME [Concomitant]
  19. AFRIN [Concomitant]
  20. OCEAN NASAL [Concomitant]
  21. FLONASE [Concomitant]
  22. LASIX [Concomitant]
  23. POTASSIUM [Concomitant]

REACTIONS (2)
  - DIZZINESS [None]
  - HEADACHE [None]
